FAERS Safety Report 8323446-8 (Version None)
Quarter: 2012Q2

REPORT INFORMATION
  Report Type: 
  Country: None (occurrence: None)
  Receive Date: 20120501
  Receipt Date: 20120423
  Transmission Date: 20120825
  Serious: Yes (Other)
  Sender: FDA-Public Use
  Company Number: US-SP-2012-03362

PATIENT
  Sex: Female

DRUGS (1)
  1. TUBERSOL [Suspect]
     Indication: TUBERCULIN TEST
     Route: 065
     Dates: start: 20090118, end: 20090118

REACTIONS (3)
  - OSTEOMYELITIS [None]
  - LOOSE TOOTH [None]
  - TOOTH LOSS [None]
